FAERS Safety Report 10019518 (Version 2)
Quarter: 2014Q1

REPORT INFORMATION
  Report Type: Spontaneous
  Country: TR (occurrence: TR)
  Receive Date: 20140318
  Receipt Date: 20140318
  Transmission Date: 20141002
  Serious: Yes (Other)
  Sender: FDA-Public Use
  Company Number: TR-009507513-2005-124236-NL

PATIENT
  Age: 54 Year
  Sex: Female

DRUGS (3)
  1. MIRTAZAPINE [Suspect]
     Indication: GENERALISED ANXIETY DISORDER
     Dosage: CONTINUING: NO, DAILY DOSE: 30 MG
  2. MIRTAZAPINE [Suspect]
     Indication: GRIEF REACTION
     Dosage: CONTINUING: NO, DAILY DOSE: 45 MG
  3. MIRTAZAPINE [Suspect]
     Dosage: CONTINUING: NO, DAILY DOSE: 30 MG

REACTIONS (2)
  - Coagulopathy [Recovered/Resolved]
  - Arthralgia [Recovered/Resolved]
